FAERS Safety Report 9057904 (Version 1)
Quarter: 2013Q1

REPORT INFORMATION
  Report Type: Spontaneous
  Country: US (occurrence: None)
  Receive Date: 20130204
  Receipt Date: 20130204
  Transmission Date: 20140127
  Serious: Yes (Other)
  Sender: FDA-Public Use
  Company Number: None

PATIENT
  Age: 56 Year
  Sex: Female
  Weight: 63.96 kg

DRUGS (1)
  1. DOXYCYCLINE [Suspect]
     Indication: SINUSITIS
     Dosage: CAP
     Route: 048
     Dates: start: 20130121, end: 20130122

REACTIONS (5)
  - Hyperhidrosis [None]
  - Heart rate increased [None]
  - Hyperventilation [None]
  - Vomiting [None]
  - Diarrhoea [None]
